FAERS Safety Report 25363161 (Version 1)
Quarter: 2025Q2

REPORT INFORMATION
  Report Type: Spontaneous
  Country: US (occurrence: US)
  Receive Date: 20250527
  Receipt Date: 20250527
  Transmission Date: 20250717
  Serious: Yes (Hospitalization, Other)
  Sender: BOEHRINGER INGELHEIM
  Company Number: US-Komodo Health-a23aa000007l9QRAAY

PATIENT
  Sex: Female

DRUGS (3)
  1. JARDIANCE [Suspect]
     Active Substance: EMPAGLIFLOZIN
     Indication: Diabetes mellitus
  2. METFORMIN [Concomitant]
     Active Substance: METFORMIN HYDROCHLORIDE
     Indication: Product used for unknown indication
  3. XARELTO [Concomitant]
     Active Substance: RIVAROXABAN
     Indication: Product used for unknown indication

REACTIONS (14)
  - Hip fracture [Unknown]
  - Diarrhoea [Not Recovered/Not Resolved]
  - Urinary incontinence [Unknown]
  - Pollakiuria [Unknown]
  - Burning sensation [Not Recovered/Not Resolved]
  - Dysphonia [Unknown]
  - Skin fissures [Not Recovered/Not Resolved]
  - Dehydration [Unknown]
  - Thirst [Not Recovered/Not Resolved]
  - Fatigue [Not Recovered/Not Resolved]
  - Diabetic foot infection [Unknown]
  - Peripheral swelling [Unknown]
  - Erythema [Unknown]
  - Skin ulcer [Unknown]

NARRATIVE: CASE EVENT DATE: 20241101
